FAERS Safety Report 18778597 (Version 2)
Quarter: 2024Q2

REPORT INFORMATION
  Report Type: Report from Study
  Country: AU (occurrence: AU)
  Receive Date: 20210124
  Receipt Date: 20240604
  Transmission Date: 20240716
  Serious: Yes (Hospitalization)
  Sender: FDA-Public Use
  Company Number: AU-JNJFOC-20210123380

PATIENT
  Age: 46 Year
  Sex: Female

DRUGS (2)
  1. STELARA [Suspect]
     Active Substance: USTEKINUMAB
     Indication: Crohn^s disease
     Route: 058
  2. STELARA [Suspect]
     Active Substance: USTEKINUMAB

REACTIONS (5)
  - Intestinal resection [Unknown]
  - Gastrointestinal anastomotic leak [Unknown]
  - Gastrointestinal stoma complication [Unknown]
  - Off label use [Unknown]
  - Product use issue [Unknown]
